FAERS Safety Report 16633494 (Version 1)
Quarter: 2019Q3

REPORT INFORMATION
  Report Type: Spontaneous
  Country: US (occurrence: US)
  Receive Date: 20190725
  Receipt Date: 20190725
  Transmission Date: 20191004
  Serious: Yes (Disabling)
  Sender: FDA-Public Use
  Company Number: None

PATIENT
  Sex: Female
  Weight: 119.7 kg

DRUGS (5)
  1. LEVOTHYROXINE. [Suspect]
     Active Substance: LEVOTHYROXINE
     Indication: HYPOTHYROIDISM
     Dates: start: 20120702, end: 20180920
  2. TUMERIC [Concomitant]
     Active Substance: HERBALS\TURMERIC
  3. MONTELUKAST SODIUM. [Concomitant]
     Active Substance: MONTELUKAST SODIUM
  4. VITAMIN D [Concomitant]
     Active Substance: VITAMIN D NOS
  5. ARMOUR THYROID [Concomitant]
     Active Substance: THYROID, PORCINE

REACTIONS (3)
  - Fatigue [None]
  - Arthralgia [None]
  - Fibromyalgia [None]
